FAERS Safety Report 7800961-4 (Version None)
Quarter: 2011Q4

REPORT INFORMATION
  Report Type: 
  Country: None (occurrence: None)
  Receive Date: 20111006
  Receipt Date: 20110928
  Transmission Date: 20120403
  Serious: Yes (Other)
  Sender: FDA-Public Use
  Company Number: JP-BAYER-2011-093141

PATIENT
  Age: 52 Year
  Sex: Male

DRUGS (1)
  1. EOB PRIMOVIST [Suspect]
     Indication: NUCLEAR MAGNETIC RESONANCE IMAGING
     Dosage: DAILY DOSE 10 ML
     Route: 042
     Dates: start: 20110915, end: 20110915

REACTIONS (4)
  - GASTRIC HAEMORRHAGE [None]
  - DYSPNOEA [None]
  - BLOOD PRESSURE DECREASED [None]
  - CHEST PAIN [None]
